FAERS Safety Report 5609453-4 (Version None)
Quarter: 2008Q1

REPORT INFORMATION
  Report Type: 
  Country: None (occurrence: None)
  Receive Date: 20080131
  Receipt Date: 20080118
  Transmission Date: 20080703
  Serious: Yes (Hospitalization)
  Sender: FDA-Public Use
  Company Number: CA-AMGEN-QUU259264

PATIENT
  Sex: Male

DRUGS (14)
  1. ARANESP [Suspect]
     Indication: RENAL FAILURE CHRONIC
     Route: 058
     Dates: start: 20060801, end: 20070901
  2. FERROUS GLUCONATE [Concomitant]
  3. LABETALOL HCL [Concomitant]
  4. ADALAT [Concomitant]
  5. FUROSEMIDE [Concomitant]
  6. ASPIRIN [Concomitant]
  7. INSULIN [Concomitant]
  8. GLYBURIDE [Concomitant]
  9. FISH OIL [Concomitant]
  10. GARLIC [Concomitant]
  11. VITAMIN B-12 [Concomitant]
  12. EVENING PRIMROSE OIL [Concomitant]
  13. NITROGLYCERIN [Concomitant]
  14. FOLIC ACID [Concomitant]

REACTIONS (2)
  - ACNE [None]
  - SEPSIS [None]
